FAERS Safety Report 9138896 (Version 2)
Quarter: 2013Q2

REPORT INFORMATION
  Report Type: Spontaneous
  Country: FR (occurrence: FR)
  Receive Date: 20130305
  Receipt Date: 20130430
  Transmission Date: 20140414
  Serious: Yes (Life-Threatening, Hospitalization)
  Sender: FDA-Public Use
  Company Number: FR-BRISTOL-MYERS SQUIBB COMPANY-17411091

PATIENT
  Age: 68 Year
  Sex: Male
  Weight: 98 kg

DRUGS (6)
  1. SPRYCEL [Suspect]
     Indication: CHRONIC MYELOID LEUKAEMIA
     Dates: start: 201209, end: 20130114
  2. NEBIVOLOL [Concomitant]
  3. CRESTOR [Concomitant]
  4. KARDEGIC [Concomitant]
  5. LASILIX [Concomitant]
  6. PREVISCAN [Concomitant]
     Dosage: 1DF:1TAB

REACTIONS (3)
  - Acute pulmonary oedema [Unknown]
  - Syncope [Unknown]
  - Congestive cardiomyopathy [Unknown]
